APPROVED DRUG PRODUCT: INPERSOL-ZM W/ DEXTROSE 1.5% IN PLASTIC CONTAINER
Active Ingredient: CALCIUM CHLORIDE; DEXTROSE; SODIUM CHLORIDE; SODIUM LACTATE
Strength: 25.7MG/100ML;1.5GM/100ML;538MG/100ML;448MG/100ML
Dosage Form/Route: SOLUTION;INTRAPERITONEAL
Application: N019395 | Product #001
Applicant: FRESENIUS MEDICAL CARE NORTH AMERICA
Approved: Mar 26, 1986 | RLD: No | RS: No | Type: DISCN